FAERS Safety Report 25481410 (Version 1)
Quarter: 2025Q2

REPORT INFORMATION
  Report Type: Spontaneous
  Country: US (occurrence: US)
  Receive Date: 20250626
  Receipt Date: 20250626
  Transmission Date: 20250716
  Serious: Yes (Hospitalization)
  Sender: HETERO
  Company Number: US-HETERO-HET2025US03354

PATIENT
  Age: 17 Year
  Sex: Female

DRUGS (1)
  1. QUETIAPINE [Suspect]
     Active Substance: QUETIAPINE
     Indication: Psychotic symptom
     Route: 048
     Dates: start: 202406, end: 202406

REACTIONS (2)
  - Urinary incontinence [Unknown]
  - Sedation [Unknown]

NARRATIVE: CASE EVENT DATE: 20240601
